FAERS Safety Report 11973063 (Version 1)
Quarter: 2016Q1

REPORT INFORMATION
  Report Type: Spontaneous
  Country: IT (occurrence: IT)
  Receive Date: 20160128
  Receipt Date: 20160128
  Transmission Date: 20160526
  Serious: Yes (Hospitalization, Other)
  Sender: FDA-Public Use
  Company Number: IT-VERNALIS THERAPEUTICS, INC.-2016VRN00004

PATIENT
  Age: 14 Year
  Sex: Female

DRUGS (4)
  1. AMOXICILLIN CLAVULANATE [Suspect]
     Active Substance: AMOXICILLIN\CLAVULANIC ACID
     Indication: ALLERGY TEST
     Dosage: UNK
     Dates: start: 201402
  2. AMOXICILLIN CLAVULANATE [Suspect]
     Active Substance: AMOXICILLIN\CLAVULANIC ACID
     Indication: BACTERIAL INFECTION
     Dosage: UNK
     Dates: start: 2012
  3. AMOXICILLIN CLAVULANATE [Suspect]
     Active Substance: AMOXICILLIN\CLAVULANIC ACID
     Dosage: UNK
     Dates: start: 201405
  4. AMOXICILLIN CLAVULANATE [Suspect]
     Active Substance: AMOXICILLIN\CLAVULANIC ACID
     Dosage: UNK
     Dates: start: 201410

REACTIONS (11)
  - Headache [None]
  - Bacterial infection [None]
  - Pruritus [None]
  - Insomnia [None]
  - Vomiting [None]
  - Generalised erythema [None]
  - Viral infection [None]
  - Pyrexia [Recovered/Resolved]
  - Diarrhoea [None]
  - Hypersensitivity [None]
  - Rash maculo-papular [Recovered/Resolved]

NARRATIVE: CASE EVENT DATE: 2012
